FAERS Safety Report 18361589 (Version 1)
Quarter: 2020Q4

REPORT INFORMATION
  Report Type: Spontaneous
  Country: CN (occurrence: CN)
  Receive Date: 20201008
  Receipt Date: 20201008
  Transmission Date: 20210114
  Serious: Yes (Hospitalization)
  Sender: FDA-Public Use
  Company Number: CN-BAXTER-2020BAX020332

PATIENT
  Age: 65 Year
  Sex: Female
  Weight: 54 kg

DRUGS (12)
  1. GLUCOSE [Suspect]
     Active Substance: DEXTROSE
     Indication: MEDICATION DILUTION
     Dosage: 1ST TO 3RD CHEMOTHERAPY AISU + GLUCOSE
     Route: 041
  2. AISU [Suspect]
     Active Substance: DOCETAXEL
     Dosage: DOSE RE-INTRODUCED AISU + GLUCOSE
     Route: 041
  3. GLUCOSE [Suspect]
     Active Substance: DEXTROSE
     Dosage: 4TH CHEMOTHERAPY AISU + GLUCOSE
     Route: 041
     Dates: start: 20200901, end: 20200901
  4. ENDOXAN [Suspect]
     Active Substance: CYCLOPHOSPHAMIDE
     Indication: BREAST CANCER
     Dosage: 1-3 CYCLES OF CHEMOTHERAPY SODIUM CHLORIDE + ENDOXAN
     Route: 041
  5. ENDOXAN [Suspect]
     Active Substance: CYCLOPHOSPHAMIDE
     Dosage: 4TH CYCLE OF CHEMOTHERAPY SODIUM CHLORIDE + ENDOXAN
     Route: 041
     Dates: start: 20200901, end: 20200901
  6. AISU [Suspect]
     Active Substance: DOCETAXEL
     Indication: BREAST CANCER
     Dosage: 1ST TO 3RD CHEMOTHERAPY AISU + GLUCOSE
     Route: 041
  7. SODIUM CHLORIDE. [Suspect]
     Active Substance: SODIUM CHLORIDE
     Dosage: DOSE RE-INTRODUCED SODIUM CHLORIDE + ENDOXAN
     Route: 041
  8. ENDOXAN [Suspect]
     Active Substance: CYCLOPHOSPHAMIDE
     Dosage: DOSE RE-INTRODUCED SODIUM CHLORIDE + ENDOXAN
     Route: 041
  9. SODIUM CHLORIDE. [Suspect]
     Active Substance: SODIUM CHLORIDE
     Indication: MEDICATION DILUTION
     Dosage: 1-3 CYCLES OF CHEMOTHERAPY SODIUM CHLORIDE + ENDOXAN
     Route: 041
  10. AISU [Suspect]
     Active Substance: DOCETAXEL
     Dosage: 4TH CHEMOTHERAPY AISU + GLUCOSE
     Route: 041
     Dates: start: 20200901, end: 20200901
  11. SODIUM CHLORIDE. [Suspect]
     Active Substance: SODIUM CHLORIDE
     Dosage: 4TH CYCLE OF CHEMOTHERAPY SODIUM CHLORIDE + ENDOXAN
     Route: 041
     Dates: start: 20200901, end: 20200901
  12. GLUCOSE [Suspect]
     Active Substance: DEXTROSE
     Dosage: DOSE RE-INTRODUCED, AISU + GLUCOSE
     Route: 041

REACTIONS (2)
  - Chest discomfort [Recovered/Resolved]
  - Dermatitis allergic [Recovered/Resolved]

NARRATIVE: CASE EVENT DATE: 20200911
